FAERS Safety Report 9320417 (Version 2)
Quarter: 2013Q4

REPORT INFORMATION
  Report Type: Spontaneous
  Country: US (occurrence: US)
  Receive Date: 20130530
  Receipt Date: 20131011
  Transmission Date: 20140711
  Serious: Yes (Hospitalization)
  Sender: FDA-Public Use
  Company Number: US-B.I. PHARMACEUTICALS,INC./RIDGEFIELD-2013-BI-14693BP

PATIENT
  Age: 72 Year
  Sex: Male
  Weight: 105.6 kg

DRUGS (21)
  1. PRADAXA [Suspect]
     Indication: ATRIAL FIBRILLATION
     Dosage: 300 MG
     Dates: start: 20110511, end: 20111107
  2. OXYGEN [Concomitant]
     Indication: CHRONIC OBSTRUCTIVE PULMONARY DISEASE
  3. FINASTERIDE [Concomitant]
     Dosage: 5 MG
     Route: 048
  4. LEVOTHYROXINE [Concomitant]
     Dosage: 225 MCG
     Route: 048
  5. ULORIC [Concomitant]
     Dosage: 80 MG
     Route: 048
  6. DILTIAZEM CD [Concomitant]
     Indication: ATRIAL FIBRILLATION
     Dosage: 240 MG
     Route: 048
  7. SYMBICORT [Concomitant]
     Route: 055
  8. SPIRIVA [Concomitant]
     Dosage: 18 MCG
     Route: 055
  9. LANTUS [Concomitant]
     Dosage: 70 U
     Route: 058
  10. SIMVASTATIN [Concomitant]
     Dosage: 80 MG
     Route: 048
  11. DIGOXIN [Concomitant]
     Indication: ATRIAL FIBRILLATION
     Dosage: 0.125 MG
     Route: 048
  12. DUONEB [Concomitant]
  13. BACTROBAN [Concomitant]
     Route: 061
  14. MIRALAX [Concomitant]
     Dosage: 17 G
     Route: 048
  15. NEXIUM [Concomitant]
     Dosage: 40 MG
     Route: 048
  16. HYDROCORTISONE/ALOE [Concomitant]
     Route: 061
  17. KLOR-CON [Concomitant]
     Route: 048
  18. ZAROXOLYN WITH LASIX [Concomitant]
     Route: 048
  19. COZAAR [Concomitant]
     Dosage: 50 MG
     Route: 048
  20. LACTULOSE [Concomitant]
     Route: 048
  21. PREDNISONE [Concomitant]
     Dosage: 10 MG
     Route: 048

REACTIONS (6)
  - Gastrointestinal haemorrhage [Unknown]
  - Haemorrhagic anaemia [Unknown]
  - Renal failure acute [Unknown]
  - Haematuria [Unknown]
  - Cardiac failure congestive [Unknown]
  - Rectal haemorrhage [Unknown]
